FAERS Safety Report 11664586 (Version 1)
Quarter: 2015Q4

REPORT INFORMATION
  Report Type: Spontaneous
  Country: US (occurrence: None)
  Receive Date: 20151026
  Receipt Date: 20151026
  Transmission Date: 20160304
  Serious: Yes (Other)
  Sender: FDA-Public Use
  Company Number: None

PATIENT
  Age: 59 Year
  Sex: Male
  Weight: 61.24 kg

DRUGS (15)
  1. LISINOPRIL. [Concomitant]
     Active Substance: LISINOPRIL
  2. HUMALOG [Concomitant]
     Active Substance: INSULIN LISPRO
  3. VITAMIN E [Concomitant]
     Active Substance: .ALPHA.-TOCOPHEROL
  4. ABILIFY [Concomitant]
     Active Substance: ARIPIPRAZOLE
  5. LANTUS [Concomitant]
     Active Substance: INSULIN GLARGINE
  6. VITAMIN A [Concomitant]
     Active Substance: VITAMIN A
  7. L-GLUTAMINE /00503401/ [Concomitant]
     Active Substance: GLUTAMINE
  8. TESTOSTERONE ENANTHATE. [Concomitant]
     Active Substance: TESTOSTERONE ENANTHATE
  9. VITAMIN D [Concomitant]
     Active Substance: CHOLECALCIFEROL
  10. INDERAL LA [Concomitant]
     Active Substance: PROPRANOLOL HYDROCHLORIDE
  11. INTELENCE [Suspect]
     Active Substance: ETRAVIRINE
     Indication: ANTIVIRAL TREATMENT
     Dosage: 1 TAB BID TWICE DAILY TAKEN BY MOUTH
     Route: 048
     Dates: start: 20151023, end: 20151025
  12. INTELENCE [Concomitant]
     Active Substance: ETRAVIRINE
  13. VITAMIN B [Concomitant]
     Active Substance: VITAMIN B
  14. ISENTRESS [Concomitant]
     Active Substance: RALTEGRAVIR POTASSIUM
  15. MIRTAZAPINE. [Concomitant]
     Active Substance: MIRTAZAPINE

REACTIONS (3)
  - Loss of consciousness [None]
  - Nausea [None]
  - Vomiting [None]

NARRATIVE: CASE EVENT DATE: 20151025
